FAERS Safety Report 11525145 (Version 1)
Quarter: 2015Q3

REPORT INFORMATION
  Report Type: Other
  Country: None (occurrence: KR)
  Receive Date: 20150918
  Receipt Date: 20150918
  Transmission Date: 20151125
  Serious: Yes (Hospitalization, Other)
  Sender: FDA-Public Use
  Company Number: KR-CONCORDIA PHARMACEUTICALS INC.-CO-ZN-KR-2015-040

PATIENT
  Age: 42 Year
  Sex: Male

DRUGS (3)
  1. RANITIDINE HYDROCHLORIDE. [Suspect]
     Active Substance: RANITIDINE HYDROCHLORIDE
     Indication: EPIGASTRIC DISCOMFORT
  2. RANITIDINE HYDROCHLORIDE. [Suspect]
     Active Substance: RANITIDINE HYDROCHLORIDE
     Indication: ABDOMINAL PAIN UPPER
  3. BUSCOPAN [Concomitant]
     Active Substance: BUTYLSCOPOLAMINE BROMIDE

REACTIONS (5)
  - Urticaria [Recovered/Resolved]
  - Vomiting [Recovered/Resolved]
  - Anaphylactic shock [Recovered/Resolved]
  - Pruritus [Recovered/Resolved]
  - Cardiac arrest [Recovered/Resolved]
